FAERS Safety Report 23699488 (Version 1)
Quarter: 2024Q2

REPORT INFORMATION
  Report Type: Spontaneous
  Country: DE (occurrence: DE)
  Receive Date: 20240402
  Receipt Date: 20240402
  Transmission Date: 20240716
  Serious: Yes (Hospitalization, Other)
  Sender: FDA-Public Use
  Company Number: DE-ADRED-05792-01

PATIENT
  Age: 44 Year
  Sex: Male
  Weight: 90 kg

DRUGS (1)
  1. HUMIRA [Suspect]
     Active Substance: ADALIMUMAB
     Indication: Rheumatoid arthritis
     Dosage: 40 MG/0.4ML,
     Route: 058

REACTIONS (5)
  - Scrotal swelling [Unknown]
  - Scrotal abscess [Unknown]
  - Dysuria [Unknown]
  - Scrotal erythema [Unknown]
  - Pollakiuria [Unknown]
